FAERS Safety Report 9321593 (Version 1)
Quarter: 2013Q2

REPORT INFORMATION
  Report Type: Spontaneous
  Country: US (occurrence: US)
  Receive Date: 20130531
  Receipt Date: 20130531
  Transmission Date: 20140414
  Serious: Yes (Other)
  Sender: FDA-Public Use
  Company Number: US-BAYER-2013-063341

PATIENT
  Age: 48 Year
  Sex: Female

DRUGS (14)
  1. BAYER GENUINE ASPIRIN ORIGINAL STRENGTH [Suspect]
  2. FLEXERIL [Concomitant]
     Indication: MUSCLE SPASMS
     Dosage: 1 DF, TID PRN
     Route: 048
  3. VASOTEC [Concomitant]
     Dosage: 1 DF, QD
     Route: 048
  4. PROZAC [Concomitant]
     Dosage: 1 DF, QD
     Route: 048
  5. NEURONTIN [Concomitant]
     Dosage: 1 DF, TID
     Route: 048
  6. HYDRODIURIL [Concomitant]
     Dosage: 0.5 TABLET
     Route: 048
  7. LIDODERM [Concomitant]
     Dosage: 1 PATCH, QD ON 12 HRS OFF 12 HRS
  8. LOPRESSOR [Concomitant]
     Dosage: 1 DF, QD
     Route: 048
  9. PRILOSEC [Concomitant]
     Dosage: 1 DF, QD
     Route: 048
  10. PRAVACHOL [Concomitant]
     Dosage: 1 DF, QD
     Route: 048
  11. ACCURETIC [Concomitant]
     Dosage: 1 DF, QD
     Route: 048
  12. NORVASC [Concomitant]
     Dosage: 1 DF, QD
     Route: 048
  13. CRESTOR [Concomitant]
     Dosage: 1 DF, QD EVERY EVENING
  14. NEXIUM [Concomitant]
     Dosage: 1 DF, QD EVERY MORNING BEFORE BREAKFAST
     Route: 048

REACTIONS (2)
  - Anaphylactic reaction [None]
  - Drug hypersensitivity [None]
